FAERS Safety Report 7362063-3 (Version None)
Quarter: 2011Q1

REPORT INFORMATION
  Report Type: 
  Country: None (occurrence: None)
  Receive Date: 20110318
  Receipt Date: 20110317
  Transmission Date: 20110831
  Serious: Yes (Other)
  Sender: FDA-Public Use
  Company Number: JP-PFIZER INC-2011041051

PATIENT
  Age: 55 Year
  Sex: Female

DRUGS (4)
  1. CADUET [Suspect]
     Dosage: UNK
     Route: 048
     Dates: start: 20101224
  2. TENORMIN [Concomitant]
     Dosage: 50 MG FREQUENCY NOT PROVIDED
     Route: 048
     Dates: start: 20100501
  3. AMARYL [Concomitant]
     Dosage: 0.5 MG FREQUENCY NOT PROVIDED
     Route: 048
     Dates: start: 20100501
  4. MELBIN [Concomitant]
     Dosage: 250 MG FREQUENCY NOT PROVIDED
     Route: 048
     Dates: start: 20100501, end: 20110101

REACTIONS (1)
  - GLYCOSYLATED HAEMOGLOBIN INCREASED [None]
